FAERS Safety Report 4578212-6 (Version None)
Quarter: 2005Q1

REPORT INFORMATION
  Report Type: 
  Country: None (occurrence: None)
  Receive Date: 20050209
  Receipt Date: 20050125
  Transmission Date: 20050727
  Serious: Yes (Hospitalization)
  Sender: FDA-Public Use
  Company Number: US_0406103668

PATIENT
  Age: 48 Year
  Sex: Female
  Weight: 87 kg

DRUGS (15)
  1. ZYPREXA [Suspect]
     Dosage: 20 MG DAY
     Dates: start: 19990101, end: 20040615
  2. GLUCOTROL [Concomitant]
  3. PENTA-TRIAMETERENE HCTZ [Concomitant]
  4. NEXIUM [Concomitant]
  5. PREMARIN [Concomitant]
  6. SYNTHROID [Concomitant]
  7. TRICOR (FENOFIBRATE0 [Concomitant]
  8. ARIPIPRAZOLE [Concomitant]
  9. HALDOL (HALOPERIDOL DECANOATE) [Concomitant]
  10. LITHIUM [Concomitant]
  11. LORAZEPAM [Concomitant]
  12. RESTTORIL (TEMAZEPAM) [Concomitant]
  13. AMBIEN [Concomitant]
  14. HYDROCODONE W/APAP [Concomitant]
  15. PENICILLIN-VK [Concomitant]

REACTIONS (25)
  - APATHY [None]
  - ARTHRALGIA [None]
  - BLOOD CHOLESTEROL ABNORMAL [None]
  - BLOOD TRIGLYCERIDES INCREASED [None]
  - CRYING [None]
  - DEPRESSION [None]
  - DIABETES MELLITUS [None]
  - EUPHORIC MOOD [None]
  - FATIGUE [None]
  - HYPERGLYCAEMIA [None]
  - HYPERTENSION [None]
  - HYPOGLYCAEMIA [None]
  - INSOMNIA [None]
  - IRRITABILITY [None]
  - LOGORRHOEA [None]
  - MANIA [None]
  - PAIN IN EXTREMITY [None]
  - POLYDIPSIA [None]
  - POLYURIA [None]
  - PRESSURE OF SPEECH [None]
  - SEDATION [None]
  - SEXUAL ACTIVITY INCREASED [None]
  - TREATMENT NONCOMPLIANCE [None]
  - VISION BLURRED [None]
  - WEIGHT DECREASED [None]
